FAERS Safety Report 8561578-X (Version None)
Quarter: 2012Q3

REPORT INFORMATION
  Report Type: 
  Country: None (occurrence: None)
  Receive Date: 20120802
  Receipt Date: 20120713
  Transmission Date: 20120928
  Serious: No
  Sender: FDA-Public Use
  Company Number: US-ASTRAZENECA-2012SE48838

PATIENT
  Age: 81 Year
  Sex: Male
  Weight: 63.5 kg

DRUGS (13)
  1. ENABLEX [Concomitant]
     Indication: RENAL DISORDER
  2. LOVAZA [Concomitant]
  3. VITAMIN D [Concomitant]
  4. LEFLUNOMIDE [Concomitant]
  5. ASPIRIN [Concomitant]
  6. CALCIUM CARBONATE [Concomitant]
  7. ALBUTEROL [Concomitant]
  8. MUCINEX [Concomitant]
  9. SPIRIVA [Concomitant]
  10. STOOL SOFTENER [Concomitant]
  11. LASIX [Concomitant]
     Indication: OEDEMA PERIPHERAL
  12. PULMICORT FLEXHALER [Suspect]
     Indication: CHRONIC OBSTRUCTIVE PULMONARY DISEASE
     Route: 055
     Dates: start: 20070101
  13. POTASSIUM [Concomitant]

REACTIONS (1)
  - DEMENTIA [None]
